FAERS Safety Report 4909054-7 (Version None)
Quarter: 2006Q1

REPORT INFORMATION
  Report Type: 
  Country: None (occurrence: None)
  Receive Date: 20060209
  Receipt Date: 20060209
  Transmission Date: 20060701
  Serious: Yes (Disabling)
  Sender: FDA-Public Use
  Company Number: None

PATIENT
  Age: 65 Year
  Sex: Female
  Weight: 82.1011 kg

DRUGS (1)
  1. ENBREL 50 MG-PFS- AMGEN/WYETH [Suspect]
     Indication: RHEUMATOID ARTHRITIS
     Dosage: 50 MG ONCE A WEEK SQ
     Route: 058

REACTIONS (2)
  - JAW DISORDER [None]
  - JAW FRACTURE [None]
